FAERS Safety Report 9438331 (Version 1)
Quarter: 2013Q3

REPORT INFORMATION
  Report Type: Spontaneous
  Country: US (occurrence: US)
  Receive Date: 20130802
  Receipt Date: 20130802
  Transmission Date: 20140515
  Serious: Yes (Hospitalization)
  Sender: FDA-Public Use
  Company Number: US-BRISTOL-MYERS SQUIBB COMPANY-17031964

PATIENT
  Age: 73 Year
  Sex: Female

DRUGS (7)
  1. WARFARIN SODIUM [Suspect]
  2. AVAPRO [Concomitant]
  3. PLAVIX [Concomitant]
  4. FUROSEMIDE [Concomitant]
  5. ASPIRIN [Concomitant]
  6. POTASSIUM [Concomitant]
  7. ALLOPURINOL [Concomitant]

REACTIONS (1)
  - International normalised ratio fluctuation [Recovering/Resolving]
